FAERS Safety Report 9106876 (Version 1)
Quarter: 2013Q1

REPORT INFORMATION
  Report Type: Report from Study
  Country: CA (occurrence: CA)
  Receive Date: 20130221
  Receipt Date: 20130221
  Transmission Date: 20140127
  Serious: Yes (Hospitalization)
  Sender: FDA-Public Use
  Company Number: CA-ABBOTT-13P-028-1039984-00

PATIENT
  Sex: Male

DRUGS (2)
  1. HUMIRA [Suspect]
     Indication: CROHN^S DISEASE
     Route: 058
     Dates: start: 20121221
  2. HUMIRA [Suspect]
     Indication: INTESTINAL FISTULA

REACTIONS (4)
  - Hospitalisation [Unknown]
  - Unevaluable event [Unknown]
  - Malaise [Unknown]
  - Tuberculosis [Unknown]
